FAERS Safety Report 6792220-6 (Version None)
Quarter: 2010Q2

REPORT INFORMATION
  Report Type: 
  Country: None (occurrence: None)
  Receive Date: 20100624
  Receipt Date: 20100616
  Transmission Date: 20101027
  Serious: Yes (Other)
  Sender: FDA-Public Use
  Company Number: US-GENENTECH-303346

PATIENT
  Sex: Female

DRUGS (3)
  1. RITUXAN [Suspect]
     Indication: RHEUMATOID ARTHRITIS
  2. CORTICOSTEROID (UNK INGREDIENTS) [Concomitant]
     Indication: PREMEDICATION
     Dosage: 100 MG, UNK
  3. DIPHENHYDRAMINE [Concomitant]
     Indication: PREMEDICATION
     Dosage: 50 MG, UNK
     Route: 048

REACTIONS (1)
  - SERUM SICKNESS [None]
